FAERS Safety Report 13938541 (Version 1)
Quarter: 2017Q3

REPORT INFORMATION
  Report Type: Spontaneous
  Country: US (occurrence: US)
  Receive Date: 20170905
  Receipt Date: 20170905
  Transmission Date: 20171127
  Serious: No
  Sender: FDA-Public Use
  Company Number: None

PATIENT
  Age: 89 Year
  Sex: Female

DRUGS (2)
  1. DULOXETINE. [Suspect]
     Active Substance: DULOXETINE
     Dosage: ?          OTHER FREQUENCY:LABEL HS AS CA;?
     Route: 048
     Dates: start: 20170901, end: 20170903
  2. ALPRAZOLAM. [Suspect]
     Active Substance: ALPRAZOLAM
     Dosage: ?          OTHER FREQUENCY:BID PRN AX;?
     Route: 048
     Dates: start: 20170901, end: 20170903

REACTIONS (2)
  - Fatigue [None]
  - Incorrect drug dosage form administered [None]

NARRATIVE: CASE EVENT DATE: 20170831
